FAERS Safety Report 20858108 (Version 1)
Quarter: 2022Q2

REPORT INFORMATION
  Report Type: Spontaneous
  Country: CN (occurrence: CN)
  Receive Date: 20220521
  Receipt Date: 20220521
  Transmission Date: 20220721
  Serious: Yes (Other)
  Sender: FDA-Public Use
  Company Number: CN-MLMSERVICE-20220510-3551856-1

PATIENT
  Age: 46 Year
  Sex: Female

DRUGS (6)
  1. OXALIPLATIN [Suspect]
     Active Substance: OXALIPLATIN
     Indication: Hepatocellular carcinoma
     Dates: start: 20200407
  2. CAMRELIZUMAB [Suspect]
     Active Substance: CAMRELIZUMAB
     Indication: Hepatocellular carcinoma
     Dosage: 200 MG, ONCE EVERY 3 WEEKS, 4 CYCLICAL
     Dates: start: 20200407
  3. 10-HYDROXYCAMPTOTHECIN [Suspect]
     Active Substance: 10-HYDROXYCAMPTOTHECIN
     Indication: Hepatocellular carcinoma
     Dates: start: 20200407
  4. PIRARUBICIN [Suspect]
     Active Substance: PIRARUBICIN
     Indication: Hepatocellular carcinoma
     Dates: start: 20200407
  5. SODIUM ALGINATE [Suspect]
     Active Substance: SODIUM ALGINATE
     Indication: Hepatocellular carcinoma
     Dates: start: 20200407
  6. IODIZED OIL [Suspect]
     Active Substance: IODIZED OIL
     Indication: Hepatocellular carcinoma
     Dates: start: 20200407

REACTIONS (2)
  - Haemangioma [Recovered/Resolved]
  - Pyrexia [Recovered/Resolved]

NARRATIVE: CASE EVENT DATE: 20200101
